FAERS Safety Report 11445027 (Version 1)
Quarter: 2015Q3

REPORT INFORMATION
  Report Type: Spontaneous
  Country: JP (occurrence: JP)
  Receive Date: 20150902
  Receipt Date: 20150902
  Transmission Date: 20151125
  Serious: No
  Sender: FDA-Public Use
  Company Number: JP-ELI_LILLY_AND_COMPANY-JP201509000132

PATIENT
  Sex: Male

DRUGS (4)
  1. CERNILTON                          /00521401/ [Concomitant]
     Indication: PROSTATITIS
     Dosage: UNK
     Route: 048
  2. CELECOX [Concomitant]
     Active Substance: CELECOXIB
     Indication: PRODUCT USED FOR UNKNOWN INDICATION
     Dosage: UNK
     Route: 048
  3. ENALAPRIL [Concomitant]
     Active Substance: ENALAPRIL
     Indication: HYPERTENSION
     Dosage: UNK
     Route: 048
  4. ZALUTIA [Suspect]
     Active Substance: TADALAFIL
     Indication: PROSTATITIS
     Dosage: 5 MG, QD
     Route: 048

REACTIONS (5)
  - Visual acuity reduced [Not Recovered/Not Resolved]
  - Eyelid oedema [Not Recovered/Not Resolved]
  - Headache [Not Recovered/Not Resolved]
  - Arthralgia [Recovered/Resolved]
  - Off label use [Unknown]
